FAERS Safety Report 6285038-4 (Version None)
Quarter: 2009Q3

REPORT INFORMATION
  Report Type: 
  Country: None (occurrence: None)
  Receive Date: 20090727
  Receipt Date: 20090722
  Transmission Date: 20100115
  Serious: Yes (Death, Hospitalization)
  Sender: FDA-Public Use
  Company Number: DE-WYE-G03673209

PATIENT
  Age: 73 Year
  Sex: Male
  Weight: 77 kg

DRUGS (7)
  1. TORISEL [Suspect]
     Indication: METASTATIC RENAL CELL CARCINOMA
     Route: 042
     Dates: start: 20090227, end: 20090409
  2. TOREM [Concomitant]
     Dosage: 10 MG/D, DURATION UNKNOWN
     Route: 048
  3. NOVALGIN [Concomitant]
     Route: 048
  4. FORTECORTIN [Concomitant]
     Dosage: 8 MG/D, DURATION UNKNOWN
     Route: 048
  5. VIANI [Concomitant]
     Dosage: 1 DOSE 2 TIMES PER DAY, DURATION UNKNOWN
     Route: 055
  6. NEBILET [Concomitant]
     Dosage: 5 MG/D, DURATION UNKNOWN
     Route: 048
  7. PANTOZOL [Concomitant]
     Dosage: 40 MG/D, DURATION UNKNOWN
     Route: 048

REACTIONS (2)
  - INTERSTITIAL LUNG DISEASE [None]
  - RESPIRATORY FAILURE [None]
